FAERS Safety Report 5179648-5 (Version None)
Quarter: 2006Q4

REPORT INFORMATION
  Report Type: 
  Country: None (occurrence: None)
  Receive Date: 20061211
  Receipt Date: 20061129
  Transmission Date: 20070319
  Serious: Yes (Hospitalization)
  Sender: FDA-Public Use
  Company Number: S06-USA-05009-01

PATIENT
  Age: 81 Year
  Sex: Female

DRUGS (8)
  1. NAMENDA [Suspect]
     Indication: DEMENTIA ALZHEIMER'S TYPE
     Dosage: 10 MG QD PO
     Route: 048
     Dates: start: 20051101, end: 20061001
  2. NAMENDA [Suspect]
     Indication: DEMENTIA ALZHEIMER'S TYPE
     Dosage: 10 MG BID PO
     Route: 048
     Dates: start: 20061001
  3. ARICEPT [Concomitant]
  4. SEROQUEL [Concomitant]
  5. REMERON [Concomitant]
  6. ATIVAN [Concomitant]
  7. PROTONIX [Concomitant]
  8. MULTI-VITAMIN [Concomitant]

REACTIONS (4)
  - AGGRESSION [None]
  - ANAEMIA [None]
  - CONSTIPATION [None]
  - FAILURE TO THRIVE [None]
